FAERS Safety Report 6572493-5 (Version None)
Quarter: 2010Q1

REPORT INFORMATION
  Report Type: 
  Country: None (occurrence: None)
  Receive Date: 20100205
  Receipt Date: 20100125
  Transmission Date: 20100710
  Serious: Yes (Other)
  Sender: FDA-Public Use
  Company Number: ES-PFIZER INC-2010009781

PATIENT
  Age: 75 Year
  Sex: Female

DRUGS (4)
  1. ALPRAZOLAM [Suspect]
  2. NAPROXEN AND NAPROXEN SODIUM [Suspect]
  3. SERTRALINE HCL [Suspect]
  4. TRIMETAZIDINE HYDROCHLORIDE [Suspect]

REACTIONS (1)
  - ANGIOLYMPHOID HYPERPLASIA WITH EOSINOPHILIA [None]
